FAERS Safety Report 8243675-1 (Version None)
Quarter: 2012Q1

REPORT INFORMATION
  Report Type: 
  Country: None (occurrence: None)
  Receive Date: 20120329
  Receipt Date: 20120326
  Transmission Date: 20120608
  Serious: Yes (Other)
  Sender: FDA-Public Use
  Company Number: US-PFIZER INC-2012078173

PATIENT
  Sex: Female
  Weight: 61.224 kg

DRUGS (2)
  1. XANAX [Concomitant]
     Indication: ANXIETY
     Dosage: 0.5 MG, 3X/DAY
  2. GEODON [Suspect]
     Indication: SCHIZOPHRENIFORM DISORDER
     Dosage: 20MG IN THE MORNING AND 80MG IN THE EVENING
     Dates: start: 20110101

REACTIONS (2)
  - DEPRESSION [None]
  - PARANOIA [None]
